FAERS Safety Report 22518710 (Version 1)
Quarter: 2023Q2

REPORT INFORMATION
  Report Type: Spontaneous
  Country: US (occurrence: US)
  Receive Date: 20230605
  Receipt Date: 20230605
  Transmission Date: 20230722
  Serious: Yes (Other)
  Sender: FDA-Public Use
  Company Number: US-AMGEN-USASP2023093947

PATIENT
  Age: 62 Year
  Sex: Female

DRUGS (2)
  1. TAVNEOS [Suspect]
     Active Substance: AVACOPAN
     Indication: Granulomatosis with polyangiitis
     Dosage: 30 MILLIGRAM, BID(TAKE 30 MG TWICE DAILY WITH FOOD)
     Route: 048
     Dates: start: 20230306
  2. TAVNEOS [Suspect]
     Active Substance: AVACOPAN
     Dosage: 20 MILLIGRAM, BID
     Route: 048

REACTIONS (1)
  - Liver disorder [Unknown]

NARRATIVE: CASE EVENT DATE: 20230101
